FAERS Safety Report 6212938-3 (Version None)
Quarter: 2009Q2

REPORT INFORMATION
  Report Type: 
  Country: None (occurrence: None)
  Receive Date: 20090602
  Receipt Date: 20090602
  Transmission Date: 20091009
  Serious: No
  Sender: FDA-Public Use
  Company Number: None

PATIENT
  Age: 50 Year
  Sex: Female
  Weight: 103.8737 kg

DRUGS (7)
  1. SORAFENIB [Suspect]
     Indication: NERVOUS SYSTEM DISORDER
     Dosage: 400MGX2/DAILY ORAL
     Route: 048
     Dates: start: 20090505
  2. TEMODAR [Suspect]
     Indication: NERVOUS SYSTEM DISORDER
     Dosage: 75MG/M^2/DAILY ORAL
     Route: 048
     Dates: start: 20090505
  3. NEXIUM [Concomitant]
  4. LASIX [Concomitant]
  5. KEPPRA [Concomitant]
  6. SYNTHROID [Concomitant]
  7. METFORMIN [Concomitant]

REACTIONS (6)
  - DERMATITIS ACNEIFORM [None]
  - ERYTHEMA [None]
  - INSOMNIA [None]
  - PHOTOSENSITIVITY REACTION [None]
  - PRURITUS [None]
  - RADIATION SKIN INJURY [None]
